FAERS Safety Report 9671936 (Version 2)
Quarter: 2013Q4

REPORT INFORMATION
  Report Type: Spontaneous
  Country: FR (occurrence: None)
  Receive Date: 20131104
  Receipt Date: 20131113
  Transmission Date: 20140711
  Serious: Yes (Other)
  Sender: FDA-Public Use
  Company Number: DSM-2013-01013

PATIENT
  Age: 77 Year
  Sex: Female

DRUGS (9)
  1. OLMETEC [Suspect]
     Indication: HYPERTENSION
     Route: 048
     Dates: start: 200712
  2. TAHOR (ATORVASTATIN CALCIUM) (20 MILLIGRAM, TABLET) (ATORVASTATIN CALCIUM) [Concomitant]
  3. AMLOR (AMLODIPINE BESILATE) (2 MILLIGRAM, TABLET) (AMLODIPINE BESILATE) [Concomitant]
  4. KARDEGIC (ACETYLSALICYLIC ACID, ACETYLSALICYLATE LYSINE) (160 MILLIGRAM) (ACETYLSALICYLIC ACID, ACETYLSALICYLATE LYSINE) [Concomitant]
  5. LYSANXIA (PRAZEPAM) (PRAZEPAM) [Concomitant]
  6. COZAAR (LOSARTAN POTASSIUM) (LOSARTAN POTASSIUM) [Concomitant]
  7. ALLOPURINOL (ALLOPURINOL) (ALLOPURINOL) [Concomitant]
  8. ASPIRINE (ACETYSALICYLIC ACID) (ACETYLSALYLIC ACID) [Concomitant]
  9. COLCHICINE (COLCHICINE) (COLCHICINE) [Concomitant]

REACTIONS (7)
  - Transient ischaemic attack [None]
  - Fall [None]
  - Fatigue [None]
  - Dizziness [None]
  - Confusional state [None]
  - Leukoencephalopathy [None]
  - Unevaluable event [None]
